FAERS Safety Report 16589057 (Version 1)
Quarter: 2019Q3

REPORT INFORMATION
  Report Type: Report from Study
  Country: FR (occurrence: FR)
  Receive Date: 20190718
  Receipt Date: 20190718
  Transmission Date: 20191004
  Serious: Yes (Other)
  Sender: FDA-Public Use
  Company Number: FR-REGENERON PHARMACEUTICALS, INC.-2019-43036

PATIENT

DRUGS (18)
  1. PREDNISOLONE CRISTERS [Concomitant]
     Indication: PROPHYLAXIS
     Dosage: 10 MG, QD
     Route: 048
     Dates: start: 201612
  2. EUPRESSYL                          /00631801/ [Concomitant]
     Active Substance: URAPIDIL
     Indication: PREHYPERTENSION
     Dosage: 60 MG, TID
     Route: 048
     Dates: start: 20190305
  3. PANTOPRAZOLE CRISTERS [Concomitant]
     Indication: GASTROOESOPHAGEAL REFLUX DISEASE
     Dosage: 20 MG, QD
     Route: 048
     Dates: start: 20190315
  4. DOLIPRANE [Concomitant]
     Active Substance: ACETAMINOPHEN
     Indication: ANALGESIC THERAPY
     Dosage: 500 MG, PRN
     Route: 048
     Dates: start: 20190208
  5. BACTRIM [Concomitant]
     Active Substance: SULFAMETHOXAZOLE\TRIMETHOPRIM
     Indication: INFECTION
     Dosage: 1 DF, QD
     Route: 048
     Dates: start: 201802
  6. ZOPICLONE [Concomitant]
     Active Substance: ZOPICLONE
     Indication: INSOMNIA
     Dosage: 7.5 MG, QD
     Route: 048
     Dates: start: 20190305
  7. TRAMADOL BIOGARAN [Concomitant]
     Active Substance: TRAMADOL
     Indication: ANALGESIC THERAPY
     Dosage: 50 MG, BID
     Route: 048
     Dates: start: 20190313
  8. FOLIC ACID ARROW [Concomitant]
     Active Substance: FOLIC ACID
     Indication: VITAMIN SUPPLEMENTATION
     Dosage: 5 MG, QD
     Route: 048
     Dates: start: 20190305
  9. RILMENIDINE CRISTERS [Concomitant]
     Indication: PREHYPERTENSION
     Dosage: 1 MG
     Route: 048
     Dates: start: 201710
  10. TAZOCILLINE [Concomitant]
     Active Substance: PIPERACILLIN SODIUM\TAZOBACTAM SODIUM
     Indication: INFECTION
     Dosage: 4 MG, BID
     Route: 042
     Dates: start: 20190223, end: 20190319
  11. UVEDOSE [Concomitant]
     Active Substance: CHOLECALCIFEROL
     Indication: VITAMIN D DEFICIENCY
     Dosage: 1 DF, Q3M
     Route: 048
     Dates: start: 201708, end: 20190319
  12. CEMIPLIMAB [Suspect]
     Active Substance: CEMIPLIMAB
     Indication: SQUAMOUS CELL CARCINOMA
     Dosage: 183 MG, QCY
     Route: 042
     Dates: start: 20190118, end: 20190118
  13. ATORVASTATIN [Suspect]
     Active Substance: ATORVASTATIN
     Indication: DYSLIPIDAEMIA
     Dosage: 10 MG, QD
     Route: 048
     Dates: start: 201606
  14. TRANSIPEG                          /00754501/ [Concomitant]
     Active Substance: POLYETHYLENE GLYCOL 3350
     Indication: CONSTIPATION
     Dosage: UNK
     Route: 048
     Dates: start: 20190315
  15. AMLODIPINE [Suspect]
     Active Substance: AMLODIPINE BESYLATE
     Indication: PREHYPERTENSION
     Dosage: 10 MG, QD
     Route: 048
     Dates: start: 201708
  16. BISOPROLOL CRISTER [Concomitant]
     Indication: PREHYPERTENSION
     Dosage: 5 MG, QD
     Route: 048
     Dates: start: 201802
  17. CEMIPLIMAB [Suspect]
     Active Substance: CEMIPLIMAB
     Dosage: 183 MG, QCY
     Dates: start: 20190305, end: 20190305
  18. HEPARIN CALCIUM [Concomitant]
     Active Substance: HEPARIN CALCIUM
     Indication: THROMBOSIS
     Dosage: Q1 DF, BID
     Route: 058
     Dates: start: 20190313

REACTIONS (1)
  - Cholestasis [Unknown]

NARRATIVE: CASE EVENT DATE: 20190402
